FAERS Safety Report 6883879-3 (Version None)
Quarter: 2010Q3

REPORT INFORMATION
  Report Type: 
  Country: None (occurrence: None)
  Receive Date: 20100729
  Receipt Date: 20100720
  Transmission Date: 20110219
  Serious: Yes (Other)
  Sender: FDA-Public Use
  Company Number: PL-JNJFOC-20100707013

PATIENT
  Sex: Female

DRUGS (8)
  1. REMICADE [Suspect]
     Indication: CROHN'S DISEASE
     Route: 042
  2. REMICADE [Suspect]
     Dosage: I3 NDUCTION DOSES IN 2005
     Route: 042
  3. REMICADE [Suspect]
     Route: 042
  4. BUDENOFALK [Concomitant]
     Indication: CROHN'S DISEASE
  5. AZATHIOPRINE [Concomitant]
     Indication: CROHN'S DISEASE
  6. ALVERINE CITRATE [Concomitant]
  7. PARACETAMOL [Concomitant]
     Indication: PREMEDICATION
     Dosage: 3 TABLETS
  8. DEXAVEN [Concomitant]
     Indication: PREMEDICATION

REACTIONS (4)
  - DYSPNOEA [None]
  - ERYTHEMA [None]
  - INFUSION RELATED REACTION [None]
  - SENSORY DISTURBANCE [None]
